FAERS Safety Report 16954627 (Version 3)
Quarter: 2020Q3

REPORT INFORMATION
  Report Type: Report from Study
  Country: FR (occurrence: FR)
  Receive Date: 20191024
  Receipt Date: 20200827
  Transmission Date: 20201102
  Serious: Yes (Life-Threatening, Hospitalization)
  Sender: FDA-Public Use
  Company Number: FR-ROCHE-2447221

PATIENT
  Age: 64 Year
  Sex: Male

DRUGS (11)
  1. CISPLATIN. [Suspect]
     Active Substance: CISPLATIN
     Indication: ANAL CANCER
     Dosage: DATE OF MOST RECENT DOSE : 05/SEP/2019
     Route: 042
     Dates: start: 20190613
  2. DACRYOSERUM [Concomitant]
     Active Substance: BORIC ACID\SODIUM BORATE
  3. VITAMIN A [Concomitant]
     Active Substance: VITAMIN A
  4. ZOPHREN [Concomitant]
     Active Substance: ONDANSETRON
  5. 5?FLUOROURACIL [Suspect]
     Active Substance: FLUOROURACIL
     Indication: ANAL CANCER
     Dosage: DATE OF MOST RECENT DOSE : 05/SEP/2019
     Route: 042
     Dates: start: 20190613
  6. ATEZOLIZUMAB. [Suspect]
     Active Substance: ATEZOLIZUMAB
     Indication: ANAL CANCER
     Dosage: DATE OF MOST RECENT DOSE : 05/SEP/2019
     Route: 042
     Dates: start: 20190613
  7. ZOPICLONE [Concomitant]
     Active Substance: ZOPICLONE
  8. DOCETAXEL. [Suspect]
     Active Substance: DOCETAXEL
     Indication: ANAL CANCER
     Dosage: DATE OF MOST RECENT DOSE : 05/SEP/2019
     Route: 042
     Dates: start: 20190613
  9. VISMED [Concomitant]
     Active Substance: HYALURONATE SODIUM
  10. FORLAX [Concomitant]
     Active Substance: POLYETHYLENE GLYCOL 4000
  11. EMEND [Concomitant]
     Active Substance: APREPITANT

REACTIONS (2)
  - Thrombocytopenia [Recovered/Resolved]
  - Platelet count decreased [Recovered/Resolved]

NARRATIVE: CASE EVENT DATE: 20190916
